FAERS Safety Report 4508951-4 (Version None)
Quarter: 2004Q4

REPORT INFORMATION
  Report Type: 
  Country: None (occurrence: None)
  Receive Date: 20041123
  Receipt Date: 20041118
  Transmission Date: 20050328
  Serious: Yes (Hospitalization)
  Sender: FDA-Public Use
  Company Number: DE-GLAXOSMITHKLINE-D0045242A

PATIENT
  Age: 30 Year
  Sex: Female

DRUGS (1)
  1. LAMICTAL [Suspect]
     Route: 065

REACTIONS (2)
  - BLOOD CREATINE INCREASED [None]
  - GRAND MAL CONVULSION [None]
